FAERS Safety Report 4951742-0 (Version None)
Quarter: 2006Q1

REPORT INFORMATION
  Report Type: 
  Country: None (occurrence: None)
  Receive Date: 20060323
  Receipt Date: 20060215
  Transmission Date: 20060701
  Serious: Yes (Other)
  Sender: FDA-Public Use
  Company Number: 144734USA

PATIENT

DRUGS (1)
  1. MERCAPTOPURINE [Suspect]
     Dosage: 50MG UNKNOWN
     Route: 065

REACTIONS (5)
  - CHROMATURIA [None]
  - DRUG DISPENSING ERROR [None]
  - FATIGUE [None]
  - HEPATOCELLULAR DAMAGE [None]
  - THROMBOCYTOPENIA [None]
